FAERS Safety Report 12550968 (Version 2)
Quarter: 2016Q3

REPORT INFORMATION
  Report Type: Report from Study
  Country: US (occurrence: US)
  Receive Date: 20160713
  Receipt Date: 20160728
  Transmission Date: 20161109
  Serious: No
  Sender: FDA-Public Use
  Company Number: US-AMGEN-USASL2016085872

PATIENT
  Age: 77 Year
  Sex: Female

DRUGS (2)
  1. ENBREL [Suspect]
     Active Substance: ETANERCEPT
     Dosage: UNK, QWK
     Route: 065
     Dates: start: 2016, end: 20160627
  2. ENBREL [Suspect]
     Active Substance: ETANERCEPT
     Indication: SKIN PLAQUE
     Dosage: UNK, 2 TIMES/WK
     Route: 065
     Dates: start: 20160505, end: 2016

REACTIONS (2)
  - Skin plaque [Unknown]
  - Off label use [Unknown]

NARRATIVE: CASE EVENT DATE: 2016
